FAERS Safety Report 7491470-3 (Version None)
Quarter: 2011Q2

REPORT INFORMATION
  Report Type: 
  Country: None (occurrence: None)
  Receive Date: 20110519
  Receipt Date: 20110511
  Transmission Date: 20111010
  Serious: Yes (Other)
  Sender: FDA-Public Use
  Company Number: PHHY2011FR41208

PATIENT
  Age: 45 Year
  Sex: Male

DRUGS (1)
  1. LAMISIL [Suspect]
     Indication: ONYCHOMYCOSIS
     Dosage: 1 DF, QD
     Route: 048

REACTIONS (5)
  - RASH [None]
  - ERYSIPELAS [None]
  - HYPERTENSION [None]
  - HEPATITIS [None]
  - PYREXIA [None]
